FAERS Safety Report 10524744 (Version 1)
Quarter: 2014Q4

REPORT INFORMATION
  Report Type: Spontaneous
  Country: US (occurrence: US)
  Receive Date: 20141017
  Receipt Date: 20141017
  Transmission Date: 20150528
  Serious: Yes (Hospitalization, Other)
  Sender: FDA-Public Use
  Company Number: US-WATSON-2014-22010

PATIENT
  Age: 15 Year
  Sex: Male

DRUGS (2)
  1. HALOPERIDOL (WATSON LABORATORIES) [Suspect]
     Active Substance: HALOPERIDOL
     Indication: AGITATION
     Dosage: 5 MG, UNKNOWN
     Route: 042
  2. HALOPERIDOL (WATSON LABORATORIES) [Suspect]
     Active Substance: HALOPERIDOL
     Indication: HALLUCINATION

REACTIONS (3)
  - Hypokinesia [Recovered/Resolved]
  - Cognitive disorder [Recovered/Resolved]
  - Unresponsive to stimuli [Recovered/Resolved]
